FAERS Safety Report 8118125-6 (Version None)
Quarter: 2012Q1

REPORT INFORMATION
  Report Type: 
  Country: None (occurrence: None)
  Receive Date: 20120207
  Receipt Date: 20120201
  Transmission Date: 20120608
  Serious: No
  Sender: FDA-Public Use
  Company Number: US-PFIZER INC-2012028335

PATIENT
  Sex: Female
  Weight: 86.2 kg

DRUGS (2)
  1. GABAPENTIN [Suspect]
     Dosage: 300 MG, 1X/DAY
     Route: 048
     Dates: start: 20120128
  2. GABAPENTIN [Suspect]
     Indication: PERIODIC LIMB MOVEMENT DISORDER
     Dosage: 300 MG, 1X/DAY
     Route: 048
     Dates: start: 20060301, end: 20120127

REACTIONS (4)
  - ABDOMINAL DISCOMFORT [None]
  - ABDOMINAL PAIN UPPER [None]
  - NAUSEA [None]
  - DIARRHOEA [None]
